FAERS Safety Report 4911620-X (Version None)
Quarter: 2006Q1

REPORT INFORMATION
  Report Type: 
  Country: None (occurrence: None)
  Receive Date: 20060213
  Receipt Date: 20060131
  Transmission Date: 20060701
  Serious: Yes (Death)
  Sender: FDA-Public Use
  Company Number: HQWYE623501FEB06

PATIENT
  Age: 21 Month
  Sex: Female

DRUGS (1)
  1. PHENERGAN VC W/ CODEINE [Suspect]

REACTIONS (1)
  - LOSS OF CONSCIOUSNESS [None]
